FAERS Safety Report 22979537 (Version 3)
Quarter: 2023Q4

REPORT INFORMATION
  Report Type: Spontaneous
  Country: AT (occurrence: AT)
  Receive Date: 20230925
  Receipt Date: 20231021
  Transmission Date: 20240110
  Serious: Yes (Other)
  Sender: FDA-Public Use
  Company Number: AT-SA-SAC20230920001249

PATIENT
  Sex: Female

DRUGS (1)
  1. DUPIXENT [Suspect]
     Active Substance: DUPILUMAB
     Indication: Polyp
     Dosage: UNK

REACTIONS (7)
  - Skin necrosis [Unknown]
  - Granuloma [Unknown]
  - Swelling [Recovered/Resolved]
  - Skin haemorrhage [Unknown]
  - Inflammation [Unknown]
  - Condition aggravated [Unknown]
  - Product use in unapproved indication [Unknown]

NARRATIVE: CASE EVENT DATE: 20230101
